FAERS Safety Report 11660217 (Version 1)
Quarter: 2015Q4

REPORT INFORMATION
  Report Type: Spontaneous
  Country: US (occurrence: US)
  Receive Date: 20151026
  Receipt Date: 20151026
  Transmission Date: 20160304
  Serious: No
  Sender: FDA-Public Use
  Company Number: US-MEDA-2011010056

PATIENT
  Age: 60 Year
  Sex: Male
  Weight: 78 kg

DRUGS (4)
  1. LUMIGAN EYE DROPS [Concomitant]
     Indication: INTRAOCULAR PRESSURE INCREASED
     Route: 047
  2. NASALCROM [Concomitant]
     Active Substance: CROMOLYN SODIUM
     Indication: RHINITIS
  3. ASTEPRO [Suspect]
     Active Substance: AZELASTINE HYDROCHLORIDE
     Indication: RHINITIS
     Dates: start: 201012, end: 201012
  4. AZELASTINE [Concomitant]
     Active Substance: AZELASTINE
     Indication: RHINITIS
     Dates: start: 201007, end: 201012

REACTIONS (4)
  - Nasal discomfort [Recovered/Resolved]
  - Nasal mucosal disorder [Recovered/Resolved]
  - Epistaxis [Recovered/Resolved]
  - Nasal dryness [Recovered/Resolved]

NARRATIVE: CASE EVENT DATE: 201012
